FAERS Safety Report 15526796 (Version 1)
Quarter: 2018Q4

REPORT INFORMATION
  Report Type: Spontaneous
  Country: US (occurrence: US)
  Receive Date: 20181018
  Receipt Date: 20181018
  Transmission Date: 20190205
  Serious: Yes (Hospitalization)
  Sender: FDA-Public Use
  Company Number: US-JNJFOC-20180813669

PATIENT
  Age: 89 Year
  Sex: Female

DRUGS (4)
  1. IMBRUVICA [Suspect]
     Active Substance: IBRUTINIB
     Indication: DIFFUSE LARGE B-CELL LYMPHOMA
     Route: 065
     Dates: start: 20180718
  2. ASPIRIN. [Concomitant]
     Active Substance: ASPIRIN
  3. COREG [Concomitant]
     Active Substance: CARVEDILOL
  4. CLOPIDOGREL [Concomitant]
     Active Substance: CLOPIDOGREL BISULFATE
     Dates: start: 20180512, end: 2018

REACTIONS (10)
  - Infarction [Unknown]
  - Cerebral haemorrhage [Unknown]
  - Off label use [Unknown]
  - Cerebrovascular accident [Unknown]
  - Subarachnoid haemorrhage [Unknown]
  - Product use in unapproved indication [Unknown]
  - Flatulence [Unknown]
  - Blindness [Unknown]
  - Cerebellar haemorrhage [Unknown]
  - Diarrhoea [Unknown]

NARRATIVE: CASE EVENT DATE: 20180718
